FAERS Safety Report 24669970 (Version 1)
Quarter: 2024Q4

REPORT INFORMATION
  Report Type: Spontaneous
  Country: CA (occurrence: CA)
  Receive Date: 20241127
  Receipt Date: 20241127
  Transmission Date: 20250115
  Serious: Yes (Other)
  Sender: ACCORD
  Company Number: None

PATIENT
  Age: 58 Year
  Sex: Female

DRUGS (2)
  1. OXALIPLATIN [Suspect]
     Active Substance: OXALIPLATIN
     Indication: Colon cancer
     Dosage: SOLUTION
     Route: 042
  2. DEXAMETHASONE [Concomitant]
     Active Substance: DEXAMETHASONE

REACTIONS (4)
  - Hyperhidrosis [Recovered/Resolved]
  - Flushing [Recovered/Resolved]
  - Pruritus [Recovered/Resolved]
  - Swollen tongue [Recovered/Resolved]
